FAERS Safety Report 14561205 (Version 1)
Quarter: 2018Q1

REPORT INFORMATION
  Report Type: Spontaneous
  Country: RU (occurrence: RU)
  Receive Date: 20180222
  Receipt Date: 20180222
  Transmission Date: 20180509
  Serious: Yes (Other)
  Sender: FDA-Public Use
  Company Number: RU-ROCHE-2071478

PATIENT
  Age: 67 Year
  Sex: Female

DRUGS (2)
  1. RITUXIMAB. [Suspect]
     Active Substance: RITUXIMAB
     Indication: B-CELL LYMPHOMA
     Route: 065
     Dates: start: 201701
  2. OBINUTUZUMAB. [Suspect]
     Active Substance: OBINUTUZUMAB
     Indication: PRODUCT USED FOR UNKNOWN INDICATION
     Dosage: 2 COURSES ON SCHEME GB
     Route: 065
     Dates: start: 2017, end: 2017

REACTIONS (6)
  - Skin mass [Recovered/Resolved]
  - B-cell lymphoma [Recovered/Resolved]
  - Skin disorder [Recovered/Resolved]
  - Oedema peripheral [Recovered/Resolved]
  - Lymphadenopathy [Recovered/Resolved]
  - Lymphoma transformation [Unknown]

NARRATIVE: CASE EVENT DATE: 201702
